FAERS Safety Report 20986808 (Version 1)
Quarter: 2022Q2

REPORT INFORMATION
  Report Type: Spontaneous
  Country: JP (occurrence: JP)
  Receive Date: 20220621
  Receipt Date: 20220621
  Transmission Date: 20220721
  Serious: Yes (Hospitalization, Other)
  Sender: FDA-Public Use
  Company Number: JP-MSD-M2022-23762

PATIENT
  Age: 73 Year
  Sex: Female

DRUGS (2)
  1. KEYTRUDA [Suspect]
     Active Substance: PEMBROLIZUMAB
     Indication: Uterine cancer
     Dosage: 200 MILLIGRAM, Q3W
     Route: 041
     Dates: start: 20220530, end: 20220530
  2. LENVATINIB MESYLATE [Suspect]
     Active Substance: LENVATINIB MESYLATE
     Indication: Uterine cancer
     Dosage: UNK, ONCE
     Route: 048
     Dates: start: 20220531, end: 20220601

REACTIONS (2)
  - Malignant neoplasm progression [Not Recovered/Not Resolved]
  - Ascites [Unknown]

NARRATIVE: CASE EVENT DATE: 20220531
